FAERS Safety Report 4496514-9 (Version None)
Quarter: 2004Q4

REPORT INFORMATION
  Report Type: 
  Country: None (occurrence: None)
  Receive Date: 20041103
  Receipt Date: 20041020
  Transmission Date: 20050328
  Serious: Yes (Hospitalization)
  Sender: FDA-Public Use
  Company Number: 601552

PATIENT
  Age: 75 Year
  Sex: Male
  Weight: 70.3075 kg

DRUGS (11)
  1. POLYGAM S/D [Suspect]
     Indication: NEUROPATHY PERIPHERAL
     Dosage: 100 GM;QM;INTRAVENOUS
     Route: 042
     Dates: start: 20040720, end: 20040818
  2. NEURONTIN [Concomitant]
  3. ZOCOR [Concomitant]
  4. TOPROL-XL [Concomitant]
  5. NORVASC [Concomitant]
  6. PREVACID [Concomitant]
  7. ASPIRIN C [Concomitant]
  8. ZESTRIL [Concomitant]
  9. MULTI-VITAMINS [Concomitant]
  10. FERROUS SULFATE TAB [Concomitant]
  11. LUPRON [Concomitant]

REACTIONS (7)
  - ALPHA HAEMOLYTIC STREPTOCOCCAL INFECTION [None]
  - BODY TEMPERATURE INCREASED [None]
  - CHILLS [None]
  - CYANOSIS [None]
  - ENDOCARDITIS [None]
  - FEELING COLD [None]
  - TREMOR [None]
